FAERS Safety Report 5484418-4 (Version None)
Quarter: 2007Q4

REPORT INFORMATION
  Report Type: 
  Country: None (occurrence: None)
  Receive Date: 20071010
  Receipt Date: 20071001
  Transmission Date: 20080405
  Serious: Yes (Hospitalization)
  Sender: FDA-Public Use
  Company Number: 2007S1000399

PATIENT

DRUGS (4)
  1. CUBICIN [Suspect]
  2. NAFCILLIN SODIUM [Concomitant]
  3. CEFAZOLIN [Concomitant]
  4. VANCOMYCIN [Concomitant]

REACTIONS (1)
  - PULMONARY OEDEMA [None]
